FAERS Safety Report 5662404-9 (Version None)
Quarter: 2008Q1

REPORT INFORMATION
  Report Type: 
  Country: None (occurrence: None)
  Receive Date: 20080313
  Receipt Date: 20080307
  Transmission Date: 20080703
  Serious: Yes (Other)
  Sender: FDA-Public Use
  Company Number: US-JNJFOC-20080302489

PATIENT
  Sex: Male
  Weight: 25.86 kg

DRUGS (2)
  1. CONCERTA [Suspect]
     Indication: AUTISM
  2. CONCERTA [Suspect]
     Indication: ATTENTION DEFICIT/HYPERACTIVITY DISORDER

REACTIONS (3)
  - ABDOMINAL PAIN UPPER [None]
  - HALLUCINATION [None]
  - WEIGHT GAIN POOR [None]
